FAERS Safety Report 5674772-2 (Version None)
Quarter: 2008Q1

REPORT INFORMATION
  Report Type: 
  Country: None (occurrence: None)
  Receive Date: 20080320
  Receipt Date: 20080307
  Transmission Date: 20080703
  Serious: Yes (Life-Threatening, Hospitalization)
  Sender: FDA-Public Use
  Company Number: HK-MERCK-0803HKG00004

PATIENT
  Age: 59 Year
  Sex: Female

DRUGS (8)
  1. MODURETIC 5-50 [Suspect]
     Indication: HYPERTENSION
     Route: 048
     Dates: start: 20040701
  2. PROPRANOLOL HYDROCHLORIDE [Concomitant]
     Indication: HYPERTENSION
     Route: 065
  3. VERAPAMIL HYDROCHLORIDE [Concomitant]
     Indication: HYPERTENSION
     Route: 048
  4. SERTRALINE HYDROCHLORIDE [Concomitant]
     Indication: DEPRESSION
     Route: 065
  5. LITHIUM SULFATE [Suspect]
     Indication: DEPRESSION
     Route: 048
  6. FLUNITRAZEPAM [Concomitant]
     Indication: INSOMNIA
     Route: 048
  7. MIRTAZAPINE [Concomitant]
     Indication: DEPRESSION
     Route: 048
  8. FLUPENTIXOL HYDROCHLORIDE AND MELITRACEN HYDROCHLORIDE [Concomitant]
     Indication: DEPRESSION
     Route: 065

REACTIONS (3)
  - DRUG INTERACTION [None]
  - STATUS EPILEPTICUS [None]
  - THERAPEUTIC AGENT TOXICITY [None]
